FAERS Safety Report 4499893-1 (Version None)
Quarter: 2004Q4

REPORT INFORMATION
  Report Type: 
  Country: None (occurrence: None)
  Receive Date: 20041108
  Receipt Date: 20041026
  Transmission Date: 20050328
  Serious: Yes (Hospitalization)
  Sender: FDA-Public Use
  Company Number: CA-2004-029303

PATIENT
  Age: 66 Year
  Sex: Male

DRUGS (1)
  1. BETASERON [Suspect]
     Indication: SECONDARY PROGRESSIVE MULTIPLE SCLEROSIS
     Dosage: 8 MIU, EVERY 2 D NEW AUTOINJECTOR, SUBCUTANEOUS
     Route: 058
     Dates: start: 20000420

REACTIONS (6)
  - FALL [None]
  - MEDICATION ERROR [None]
  - MUSCLE RUPTURE [None]
  - REFUSAL OF TREATMENT BY PATIENT [None]
  - TENDON RUPTURE [None]
  - TREATMENT NONCOMPLIANCE [None]
